FAERS Safety Report 20428273 (Version 1)
Quarter: 2022Q1

REPORT INFORMATION
  Report Type: Spontaneous
  Country: US (occurrence: US)
  Receive Date: 20220204
  Receipt Date: 20220204
  Transmission Date: 20220423
  Serious: No
  Sender: FDA-Public Use
  Company Number: US-ORGANON-O2201USA001287

PATIENT
  Age: 68 Year
  Sex: Female

DRUGS (2)
  1. DIPROLENE [Suspect]
     Active Substance: BETAMETHASONE DIPROPIONATE
     Indication: Morphoea
     Dosage: UNK
     Route: 061
  2. TACROLIMUS [Concomitant]
     Active Substance: TACROLIMUS
     Indication: Morphoea
     Dosage: UNK

REACTIONS (1)
  - Product use in unapproved indication [Unknown]
